FAERS Safety Report 12454628 (Version 1)
Quarter: 2016Q2

REPORT INFORMATION
  Report Type: Report from Study
  Country: CA (occurrence: CA)
  Receive Date: 20160610
  Receipt Date: 20160610
  Transmission Date: 20160815
  Serious: Yes (Other)
  Sender: FDA-Public Use
  Company Number: CA-ROCHE-1627870

PATIENT
  Age: 58 Year
  Sex: Female
  Weight: 50.8 kg

DRUGS (4)
  1. KADCYLA [Suspect]
     Active Substance: ADO-TRASTUZUMAB EMTANSINE
     Indication: HER-2 POSITIVE BREAST CANCER
     Route: 042
     Dates: start: 20150807
  2. ATORVASTATIN [Concomitant]
     Active Substance: ATORVASTATIN
  3. HERCEPTIN [Suspect]
     Active Substance: TRASTUZUMAB
     Indication: PRODUCT USED FOR UNKNOWN INDICATION
     Route: 065
  4. KADCYLA [Suspect]
     Active Substance: ADO-TRASTUZUMAB EMTANSINE
     Route: 042
     Dates: start: 20151029

REACTIONS (30)
  - Nasopharyngitis [Not Recovered/Not Resolved]
  - Blood albumin decreased [Unknown]
  - Lymphocyte count decreased [Unknown]
  - Blood bilirubin decreased [Not Recovered/Not Resolved]
  - Hypertension [Not Recovered/Not Resolved]
  - Fatigue [Recovering/Resolving]
  - Monocyte count increased [Not Recovered/Not Resolved]
  - Neutrophil count increased [Not Recovered/Not Resolved]
  - Blood lactate dehydrogenase increased [Unknown]
  - Lipase increased [Unknown]
  - Mean cell haemoglobin increased [Unknown]
  - Blood glucose increased [Not Recovered/Not Resolved]
  - Blood magnesium increased [Unknown]
  - Nausea [Not Recovered/Not Resolved]
  - Blood pressure increased [Unknown]
  - Aspartate aminotransferase increased [Not Recovered/Not Resolved]
  - Blood glucose increased [Unknown]
  - Headache [Recovering/Resolving]
  - Lymphocyte count decreased [Not Recovered/Not Resolved]
  - Neutrophil percentage increased [Unknown]
  - Blood alkaline phosphatase increased [Not Recovered/Not Resolved]
  - Weight decreased [Unknown]
  - Oxygen saturation decreased [Unknown]
  - Blood uric acid decreased [Unknown]
  - Blood chloride decreased [Unknown]
  - Red cell distribution width increased [Unknown]
  - Lymphocyte percentage decreased [Unknown]
  - Blood urea decreased [Unknown]
  - White blood cell count increased [Unknown]
  - Heart rate increased [Unknown]

NARRATIVE: CASE EVENT DATE: 20151029
